FAERS Safety Report 9299829 (Version 2)
Quarter: 2013Q2

REPORT INFORMATION
  Report Type: Spontaneous
  Country: US (occurrence: None)
  Receive Date: 20121102
  Receipt Date: 20130415
  Transmission Date: 20140414
  Serious: Yes (Disabling, Other)
  Sender: FDA-Public Use
  Company Number: 2012033471

PATIENT
  Sex: Male
  Weight: 24.7 kg

DRUGS (1)
  1. HIZENTRA [Suspect]
     Indication: BRUTON^S AGAMMAGLOBULINAEMIA
     Dosage: (2.5 G 1X/WEEK, TUESDAYS STARTED IN 2000 SUBCUTANEOUS)

REACTIONS (4)
  - Muscle twitching [None]
  - Tremor [None]
  - Lethargy [None]
  - Convulsion [None]
